FAERS Safety Report 5598084-0 (Version None)
Quarter: 2008Q1

REPORT INFORMATION
  Report Type: 
  Country: None (occurrence: None)
  Receive Date: 20080122
  Receipt Date: 20080111
  Transmission Date: 20080703
  Serious: Yes (Hospitalization)
  Sender: FDA-Public Use
  Company Number: JP-NOVOPROD-271163

PATIENT
  Age: 67 Year
  Sex: Female
  Weight: 36 kg

DRUGS (4)
  1. INNOLET N CHU [Suspect]
     Indication: DIABETES MELLITUS
     Dates: start: 20050401, end: 20060601
  2. INNOLET N CHU [Suspect]
  3. LONGES [Concomitant]
     Indication: HYPERTENSION
     Route: 048
     Dates: start: 20000628
  4. LANDEL [Concomitant]
     Indication: HYPERTENSION
     Route: 048
     Dates: start: 20000628

REACTIONS (6)
  - BLOOD GLUCOSE FLUCTUATION [None]
  - BONE PAIN [None]
  - CONFUSIONAL STATE [None]
  - DIARRHOEA [None]
  - LOSS OF CONSCIOUSNESS [None]
  - NEPHROGENIC ANAEMIA [None]
